FAERS Safety Report 6966723-5 (Version None)
Quarter: 2010Q3

REPORT INFORMATION
  Report Type: 
  Country: None (occurrence: None)
  Receive Date: 20100906
  Receipt Date: 20100902
  Transmission Date: 20110219
  Serious: Yes (Other)
  Sender: FDA-Public Use
  Company Number: US-ASTRAZENECA-2007UW16421

PATIENT
  Age: 47 Year
  Sex: Female
  Weight: 92.5 kg

DRUGS (33)
  1. SEROQUEL [Suspect]
     Indication: MENTAL DISORDER
     Dosage: 100-200 MG
     Route: 048
     Dates: start: 20010815, end: 20021105
  2. SEROQUEL [Suspect]
     Indication: DEPRESSION
     Dosage: 100-200 MG
     Route: 048
     Dates: start: 20010815, end: 20021105
  3. SEROQUEL [Suspect]
     Indication: SCHIZOPHRENIA
     Dosage: 100-200 MG
     Route: 048
     Dates: start: 20010815, end: 20021105
  4. SEROQUEL [Suspect]
     Dosage: 200-300 MG
     Route: 048
     Dates: start: 20030114, end: 20070808
  5. SEROQUEL [Suspect]
     Dosage: 200-300 MG
     Route: 048
     Dates: start: 20030114, end: 20070808
  6. SEROQUEL [Suspect]
     Dosage: 200-300 MG
     Route: 048
     Dates: start: 20030114, end: 20070808
  7. QUINAPRIL [Concomitant]
  8. METFORMIN HCL [Concomitant]
  9. PAXIL [Concomitant]
     Dosage: 10-30 MG
     Route: 048
  10. BUSPAR [Concomitant]
  11. SINEQUAN [Concomitant]
  12. COGENTIN [Concomitant]
  13. GLUCOPHAGE [Concomitant]
     Indication: DIABETES MELLITUS
  14. PAXIL CR [Concomitant]
     Route: 048
  15. REQUIP [Concomitant]
     Indication: RESTLESS LEGS SYNDROME
     Dosage: 1-2 MG DAILY
     Route: 048
  16. HYDROXYZINE HYDROCHLORIDE [Concomitant]
  17. AMITRIPTYLINE HYDROCHLORIDE [Concomitant]
  18. NEURONTIN [Concomitant]
     Indication: ARTHRITIS
     Dosage: 100-300 MG
  19. FERROUS SULFATE [Concomitant]
  20. OYST-CAL [Concomitant]
  21. IBUPROFEN [Concomitant]
  22. DIPHENHYDRAMINE HCL [Concomitant]
  23. BACLOFEN [Concomitant]
  24. LYRICA [Concomitant]
  25. LISINOPRIL [Concomitant]
  26. VIOXX [Concomitant]
  27. QUININE SULFATE [Concomitant]
  28. ENDODAN [Concomitant]
  29. ASPIRIN [Concomitant]
  30. DIAZEPAM [Concomitant]
  31. KLOR-CON [Concomitant]
     Dosage: 8 MEQ
  32. FLUCONAZOLE [Concomitant]
  33. RISPERDAL [Concomitant]
     Indication: DEPRESSION
     Dates: start: 20010601, end: 20010801

REACTIONS (10)
  - DIABETIC KETOACIDOSIS [None]
  - DISCOMFORT [None]
  - DIZZINESS [None]
  - MAJOR DEPRESSION [None]
  - NEUROPATHY PERIPHERAL [None]
  - PAIN IN EXTREMITY [None]
  - SCHIZOPHRENIA, UNDIFFERENTIATED TYPE [None]
  - SYNCOPE [None]
  - TYPE 2 DIABETES MELLITUS [None]
  - VULVOVAGINAL CANDIDIASIS [None]
